FAERS Safety Report 5474802-7 (Version None)
Quarter: 2007Q4

REPORT INFORMATION
  Report Type: 
  Country: None (occurrence: None)
  Receive Date: 20071002
  Receipt Date: 20070921
  Transmission Date: 20080405
  Serious: Yes (Other)
  Sender: FDA-Public Use
  Company Number: B0489301A

PATIENT
  Age: 56 Year
  Sex: Male
  Weight: 63 kg

DRUGS (6)
  1. ZYBAN [Suspect]
     Route: 048
     Dates: start: 20070603, end: 20070621
  2. SORIATANE [Suspect]
     Indication: PSORIASIS
     Dosage: 25MG PER DAY
     Route: 048
     Dates: start: 20070209
  3. PREVISCAN [Concomitant]
     Route: 065
  4. RIVOTRIL [Concomitant]
     Route: 065
  5. FONZYLANE [Concomitant]
     Route: 065
  6. LAMALINE [Concomitant]
     Route: 065

REACTIONS (2)
  - DRUG INTERACTION [None]
  - GAMMA-GLUTAMYLTRANSFERASE INCREASED [None]
